FAERS Safety Report 15649749 (Version 1)
Quarter: 2018Q4

REPORT INFORMATION
  Report Type: Spontaneous
  Country: DE (occurrence: DE)
  Receive Date: 20181122
  Receipt Date: 20181122
  Transmission Date: 20190205
  Serious: Yes (Hospitalization)
  Sender: FDA-Public Use
  Company Number: DE-AUROBINDO-AUR-APL-2018-056301

PATIENT
  Age: 57 Year
  Sex: Female

DRUGS (10)
  1. ZOPICLONE 7.5MG [Interacting]
     Active Substance: ZOPICLONE
     Indication: INSOMNIA
     Dosage: TRIED IN LOW DOSAGES
     Route: 048
     Dates: start: 201806
  2. VALDOXAN [Interacting]
     Active Substance: AGOMELATINE
     Dosage: 25 MG IN THE EVENING. VALDOXAN IS TO BE DISCONTINUED
     Route: 048
     Dates: start: 201810
  3. DIPIPERON [Concomitant]
     Active Substance: PIPAMPERONE
     Indication: PRODUCT USED FOR UNKNOWN INDICATION
     Dosage: UNKNOWN - DIFFERENT DOSING
     Route: 065
     Dates: start: 201807
  4. ZOPICLONE 7.5MG [Interacting]
     Active Substance: ZOPICLONE
     Dosage: 75 MILLIGRAM, ONCE A DAY
     Route: 048
     Dates: start: 201807
  5. VALDOXAN [Interacting]
     Active Substance: AGOMELATINE
     Indication: DEPRESSION
     Dosage: 25 MILLIGRAM
     Route: 048
     Dates: start: 201807
  6. TRIMIPRAMIN-NEURAXPHARM [Interacting]
     Active Substance: TRIMIPRAMINE MALEATE
     Indication: PRODUCT USED FOR UNKNOWN INDICATION
     Dosage: CURRENTLY 10 DROPS A DAY TO BE INCRESED TO 20 DROPS
     Route: 048
  7. ZYPREXA [Concomitant]
     Active Substance: OLANZAPINE
     Indication: PRODUCT USED FOR UNKNOWN INDICATION
     Dosage: UNK
     Route: 048
     Dates: start: 201807
  8. VALDOXAN [Interacting]
     Active Substance: AGOMELATINE
     Dosage: 25 MILLIGRAM
     Route: 048
     Dates: start: 20180710
  9. TAVOR (LORAZEPAM) [Concomitant]
     Active Substance: LORAZEPAM
     Indication: PRODUCT USED FOR UNKNOWN INDICATION
     Dosage: UNK
     Route: 016
     Dates: start: 20180601
  10. MIRTAZAPINE. [Suspect]
     Active Substance: MIRTAZAPINE
     Indication: PRODUCT USED FOR UNKNOWN INDICATION
     Dosage: UNK
     Route: 048

REACTIONS (7)
  - Sedation [Unknown]
  - Drug interaction [Unknown]
  - Fatigue [Not Recovered/Not Resolved]
  - Nightmare [Unknown]
  - Condition aggravated [Not Recovered/Not Resolved]
  - Depression [Not Recovered/Not Resolved]
  - Sleep disorder [Not Recovered/Not Resolved]

NARRATIVE: CASE EVENT DATE: 2018
